FAERS Safety Report 12817542 (Version 1)
Quarter: 2016Q4

REPORT INFORMATION
  Report Type: Spontaneous
  Country: CZ (occurrence: CZ)
  Receive Date: 20161006
  Receipt Date: 20161006
  Transmission Date: 20170207
  Serious: Yes (Other)
  Sender: FDA-Public Use
  Company Number: CZ-ACCORD-044574

PATIENT
  Age: 60 Year
  Sex: Female

DRUGS (1)
  1. METHOTREXATE. [Suspect]
     Active Substance: METHOTREXATE
     Indication: INFLAMMATORY BOWEL DISEASE

REACTIONS (5)
  - Rash [Unknown]
  - Swelling face [Unknown]
  - Off label use [Unknown]
  - Circulatory collapse [Unknown]
  - Hypersensitivity [Unknown]
